FAERS Safety Report 8089669-0 (Version None)
Quarter: 2012Q1

REPORT INFORMATION
  Report Type: 
  Country: None (occurrence: None)
  Receive Date: 20120128
  Receipt Date: 20110618
  Transmission Date: 20120608
  Serious: No
  Sender: FDA-Public Use
  Company Number: US-ABBOTT-11P-163-0733658-00

PATIENT
  Age: 34 Year
  Sex: Female

DRUGS (6)
  1. SEROQUEL [Concomitant]
     Indication: DEPRESSION
  2. ZOLOFT [Concomitant]
     Indication: DEPRESSION
     Dosage: DAILY
  3. HUMIRA [Suspect]
     Indication: CROHN'S DISEASE
  4. UNKNOWN MEDICATION STARTING WITH AN M [Concomitant]
     Indication: PRODUCT USED FOR UNKNOWN INDICATION
  5. PREDNISONE TAB [Concomitant]
     Indication: PRODUCT USED FOR UNKNOWN INDICATION
     Dosage: DAILY THEN TAPERING DOSE
  6. LOMOTIL [Concomitant]
     Indication: PRODUCT USED FOR UNKNOWN INDICATION
     Dosage: UP TO 7 TABS DAILY

REACTIONS (1)
  - MIGRAINE [None]
